FAERS Safety Report 18979992 (Version 1)
Quarter: 2021Q1

REPORT INFORMATION
  Report Type: Spontaneous
  Country: US (occurrence: US)
  Receive Date: 20210305
  Receipt Date: 20210305
  Transmission Date: 20210420
  Serious: No
  Sender: FDA-Public Use
  Company Number: None

PATIENT
  Age: 68 Year
  Sex: Female
  Weight: 65.8 kg

DRUGS (6)
  1. GRANISETRON [Concomitant]
     Active Substance: GRANISETRON
     Dates: start: 20201015
  2. PEMBROLIZUMAB. [Suspect]
     Active Substance: PEMBROLIZUMAB
     Indication: SQUAMOUS CELL CARCINOMA OF THE VAGINA
     Dosage: ?          OTHER FREQUENCY:EVERY 21 DAYS;?
     Route: 042
     Dates: start: 20201112
  3. FAMOTIDINE. [Concomitant]
     Active Substance: FAMOTIDINE
     Dates: start: 20201015
  4. PACLITAXEL. [Suspect]
     Active Substance: PACLITAXEL
     Indication: SQUAMOUS CELL CARCINOMA OF THE VAGINA
     Dosage: ?          OTHER FREQUENCY:EVERY 7 DAYS;?
     Route: 042
     Dates: start: 20201015
  5. DEXAMETHASONE. [Concomitant]
     Active Substance: DEXAMETHASONE
     Dates: start: 20201015
  6. CARBOPLATIN. [Suspect]
     Active Substance: CARBOPLATIN

REACTIONS (2)
  - Abdominal pain [None]
  - Chills [None]

NARRATIVE: CASE EVENT DATE: 20210304
